FAERS Safety Report 7932652-3 (Version None)
Quarter: 2011Q4

REPORT INFORMATION
  Report Type: 
  Country: None (occurrence: None)
  Receive Date: 20111122
  Receipt Date: 20111116
  Transmission Date: 20120403
  Serious: Yes (Other)
  Sender: FDA-Public Use
  Company Number: US-AMGEN-USASP2011060486

PATIENT
  Age: 72 Year
  Sex: Female

DRUGS (4)
  1. ENBREL [Suspect]
     Indication: PRODUCT USED FOR UNKNOWN INDICATION
     Dosage: 25 MG, 2 TIMES/WK
  2. OMEPRAZOLE [Concomitant]
  3. LIPITOR [Concomitant]
  4. METHOTREXATE [Concomitant]

REACTIONS (2)
  - CORONARY ARTERY OCCLUSION [None]
  - INFECTION [None]
